FAERS Safety Report 24758322 (Version 1)
Quarter: 2024Q4

REPORT INFORMATION
  Report Type: Spontaneous
  Country: BR (occurrence: BR)
  Receive Date: 20241220
  Receipt Date: 20241220
  Transmission Date: 20250114
  Serious: Yes (Life-Threatening, Hospitalization, Disabling, Other)
  Sender: CHEPLAPHARM
  Company Number: None

PATIENT
  Age: 47 Year
  Sex: Male

DRUGS (1)
  1. CAPECITABINE [Suspect]
     Active Substance: CAPECITABINE
     Indication: Rectal cancer metastatic
     Dosage: DAILY DOSE: 2000 MILLIGRAM/M?

REACTIONS (4)
  - Palmar-plantar erythrodysaesthesia syndrome [Recovered/Resolved]
  - Fingerprint loss [Not Recovered/Not Resolved]
  - Impaired driving ability [Unknown]
  - Hepatic failure [Unknown]
